FAERS Safety Report 5308037-5 (Version None)
Quarter: 2007Q1

REPORT INFORMATION
  Report Type: 
  Country: None (occurrence: None)
  Receive Date: 20070130
  Receipt Date: 20060215
  Transmission Date: 20070707
  Serious: Yes (Other)
  Sender: FDA-Public Use
  Company Number: 436864

PATIENT
  Age: 52 Year
  Sex: Female
  Weight: 83 kg

DRUGS (8)
  1. COPEGUS [Suspect]
     Indication: HEPATITIS C
     Dosage: ORAL
     Route: 048
     Dates: start: 20051014, end: 20060324
  2. PEG-INTRON [Suspect]
     Indication: HEPATITIS C
     Dosage: SUBCUTANEOUS
     Route: 058
     Dates: start: 20051014, end: 20060324
  3. PHENERGAN [Concomitant]
  4. IBUPROFEN [Concomitant]
  5. HYDROCHLOROTHIAZIDE [Concomitant]
  6. KLONOPIN [Concomitant]
  7. SEROQUEL [Concomitant]
  8. ENALAPRIL MALEATE [Concomitant]

REACTIONS (12)
  - ANAEMIA [None]
  - ARTHRALGIA [None]
  - ASTHENIA [None]
  - CHEST PAIN [None]
  - DIZZINESS [None]
  - DYSPNOEA [None]
  - HEADACHE [None]
  - MYALGIA [None]
  - NAUSEA [None]
  - PALLOR [None]
  - PALPITATIONS [None]
  - SYNOVIAL CYST [None]
